FAERS Safety Report 5446077-6 (Version None)
Quarter: 2007Q3

REPORT INFORMATION
  Report Type: 
  Country: None (occurrence: None)
  Receive Date: 20070904
  Receipt Date: 20070821
  Transmission Date: 20080115
  Serious: Yes (Hospitalization)
  Sender: FDA-Public Use
  Company Number: S07-SWI-02889-01

PATIENT
  Sex: Female

DRUGS (6)
  1. CITALOPRAM HYDROBROMIDE [Suspect]
     Indication: DEPRESSION
     Dosage: 20 MG QD PO
     Route: 048
     Dates: start: 20050101
  2. PURINETHOL [Suspect]
     Indication: CROHN'S DISEASE
     Dosage: 50 MG QD PO
     Route: 048
     Dates: start: 20050101
  3. PREDNISONE [Suspect]
     Indication: ASTHMA
     Dosage: 5 MG QD PO
     Route: 048
  4. CO-DAFALGAN [Suspect]
  5. VI-DE 3 (COLECALCIFEROL) [Concomitant]
  6. ACETAMINOPHEN [Concomitant]

REACTIONS (2)
  - DRUG EXPOSURE DURING PREGNANCY [None]
  - PREGNANCY [None]
